FAERS Safety Report 19850208 (Version 2)
Quarter: 2021Q3

REPORT INFORMATION
  Report Type: Spontaneous
  Country: RU (occurrence: RU)
  Receive Date: 20210917
  Receipt Date: 20210924
  Transmission Date: 20211014
  Serious: Yes (Other)
  Sender: FDA-Public Use
  Company Number: RU-GILEAD-2021-0548894

PATIENT
  Age: 34 Year
  Sex: Female
  Weight: 65 kg

DRUGS (2)
  1. DEXAMETHASONE. [Concomitant]
     Active Substance: DEXAMETHASONE
     Indication: COVID-19
     Dosage: 8 MG, ONCE A DAY FOR, 3 DAYS, 4MG, ONCE A DAY FOR 2 DAYS
     Dates: start: 20210802, end: 20210806
  2. VEKLURY [Suspect]
     Active Substance: REMDESIVIR
     Indication: COVID-19
     Dosage: 200MG I/V DRIP ON THE 1ST DAY, THEN 100MG 1 TIME A DAY
     Route: 042
     Dates: start: 20210802, end: 20210804

REACTIONS (4)
  - Abdominal pain upper [Unknown]
  - Maternal exposure during pregnancy [Not Recovered/Not Resolved]
  - Amylase increased [Unknown]
  - Pancreatitis acute [Unknown]

NARRATIVE: CASE EVENT DATE: 20210802
